FAERS Safety Report 14467783 (Version 1)
Quarter: 2018Q1

REPORT INFORMATION
  Report Type: Report from Study
  Country: US (occurrence: US)
  Receive Date: 20180131
  Receipt Date: 20180131
  Transmission Date: 20180509
  Serious: Yes (Other)
  Sender: FDA-Public Use
  Company Number: US-ASTELLAS-2016US001604

PATIENT
  Age: 74 Year
  Sex: Female

DRUGS (13)
  1. ERLOTINIB [Suspect]
     Active Substance: ERLOTINIB
     Indication: BRAIN NEOPLASM
     Route: 048
     Dates: start: 20150917, end: 20160107
  2. PROAIR HFA [Concomitant]
     Active Substance: ALBUTEROL SULFATE
     Indication: PRODUCT USED FOR UNKNOWN INDICATION
     Route: 055
  3. ACETAMINOPHEN. [Concomitant]
     Active Substance: ACETAMINOPHEN
     Indication: MUSCULOSKELETAL PAIN
     Route: 048
  4. ERLOTINIB [Suspect]
     Active Substance: ERLOTINIB
     Indication: NON-SMALL CELL LUNG CANCER
     Route: 065
     Dates: start: 201512
  5. HCTZ [Concomitant]
     Active Substance: HYDROCHLOROTHIAZIDE
     Indication: PRODUCT USED FOR UNKNOWN INDICATION
     Route: 048
     Dates: start: 2000
  6. PRAVASTATIN. [Concomitant]
     Active Substance: PRAVASTATIN
     Indication: BLOOD CHOLESTEROL
     Route: 048
     Dates: start: 2000
  7. ERLOTINIB [Suspect]
     Active Substance: ERLOTINIB
     Indication: LUNG NEOPLASM MALIGNANT
     Route: 065
     Dates: start: 201601
  8. ERLOTINIB [Suspect]
     Active Substance: ERLOTINIB
     Indication: LUNG CANCER METASTATIC
     Route: 065
     Dates: start: 201509, end: 201512
  9. ERLOTINIB [Suspect]
     Active Substance: ERLOTINIB
     Route: 048
     Dates: start: 201602
  10. LISINOPRIL. [Concomitant]
     Active Substance: LISINOPRIL
     Indication: BLOOD PRESSURE MEASUREMENT
     Route: 048
     Dates: start: 2000
  11. FOLIC ACID. [Concomitant]
     Active Substance: FOLIC ACID
     Indication: PRODUCT USED FOR UNKNOWN INDICATION
     Route: 048
     Dates: start: 2013
  12. METOCLOPRAMIDE. [Concomitant]
     Active Substance: METOCLOPRAMIDE
     Indication: VOMITING
     Dosage: 10 MG, UNKNOWN FREQ. (TAKES 1/2 PILL)
     Route: 048
  13. AMLODIPINE [Concomitant]
     Active Substance: AMLODIPINE BESYLATE
     Indication: BLOOD PRESSURE MEASUREMENT
     Route: 048
     Dates: start: 2000

REACTIONS (29)
  - Asthenopia [Unknown]
  - Eye irritation [Unknown]
  - Blood potassium decreased [Unknown]
  - Eyelid margin crusting [Recovering/Resolving]
  - Rash [Recovering/Resolving]
  - Hair growth abnormal [Unknown]
  - Eye pain [Not Recovered/Not Resolved]
  - Alopecia [Not Recovered/Not Resolved]
  - Pain [Unknown]
  - Epistaxis [Recovered/Resolved with Sequelae]
  - Nasal crusting [Recovering/Resolving]
  - Rash [Recovered/Resolved]
  - Stomatitis [Recovered/Resolved]
  - Asthenopia [Recovered/Resolved]
  - Dry eye [Not Recovered/Not Resolved]
  - Fatigue [Unknown]
  - Skin infection [Recovering/Resolving]
  - Skin fissures [Recovered/Resolved]
  - Eye disorder [Not Recovered/Not Resolved]
  - Malaise [Recovered/Resolved]
  - Vomiting [Recovered/Resolved]
  - Eye ulcer [Recovering/Resolving]
  - Blood pressure decreased [Unknown]
  - Skin fissures [Recovering/Resolving]
  - Weight increased [Unknown]
  - Arthropod infestation [Unknown]
  - Dry skin [Recovering/Resolving]
  - Localised infection [Recovered/Resolved]
  - Fatigue [Not Recovered/Not Resolved]

NARRATIVE: CASE EVENT DATE: 201509
